FAERS Safety Report 8653666 (Version 4)
Quarter: 2012Q4

REPORT INFORMATION
  Report Type: 
  Country: CA (occurrence: CA)
  Receive Date: 20120709
  Receipt Date: 20120918
  Transmission Date: 20130627
  Serious: Yes (Other)
  Sender: FDA-Public Use
  Company Number: PHHY2012CA057898

PATIENT
  Age: 36 Year
  Sex: Female

DRUGS (2)
  1. EXTAVIA [Suspect]
     Indication: RELAPSING-REMITTING MULTIPLE SCLEROSIS
     Dosage: 8 MIU, QOD
     Route: 058
     Dates: start: 20120618
  2. EXTAVIA [Suspect]
     Dosage: 0.75 ml, UNK
     Route: 058
     Dates: start: 20120702, end: 20120718

REACTIONS (7)
  - Arthralgia [Unknown]
  - Insomnia [Unknown]
  - Neuralgia [Unknown]
  - Influenza like illness [Recovered/Resolved]
  - Pain [Unknown]
  - Drug administration error [None]
  - No therapeutic response [None]
